FAERS Safety Report 24879733 (Version 1)
Quarter: 2025Q1

REPORT INFORMATION
  Report Type: Spontaneous
  Country: US (occurrence: US)
  Receive Date: 20250123
  Receipt Date: 20250123
  Transmission Date: 20250408
  Serious: Yes (Hospitalization, Other)
  Sender: FRESENIUS KABI
  Company Number: US-FreseniusKabi-FK202501219

PATIENT
  Age: 4 Year
  Sex: Male

DRUGS (22)
  1. DEXMEDETOMIDINE [Suspect]
     Active Substance: DEXMEDETOMIDINE
     Indication: Sedation
  2. nebulized budesonide [Concomitant]
     Indication: Croup infectious
     Dosage: NEBULIZED
  3. nebulized budesonide [Concomitant]
     Indication: Asthma
  4. nebulized budesonide [Concomitant]
     Indication: Snoring
  5. ALBUTEROL [Concomitant]
     Active Substance: ALBUTEROL
     Indication: Croup infectious
  6. ALBUTEROL [Concomitant]
     Active Substance: ALBUTEROL
     Indication: Asthma
  7. ALBUTEROL [Concomitant]
     Active Substance: ALBUTEROL
     Indication: Snoring
  8. MONTELUKAST [Concomitant]
     Active Substance: MONTELUKAST
     Indication: Croup infectious
     Route: 048
  9. MONTELUKAST [Concomitant]
     Active Substance: MONTELUKAST
     Indication: Asthma
  10. MONTELUKAST [Concomitant]
     Active Substance: MONTELUKAST
     Indication: Snoring
  11. DEXAMETHASONE [Concomitant]
     Active Substance: DEXAMETHASONE
     Indication: Croup infectious
     Route: 048
  12. DEXAMETHASONE [Concomitant]
     Active Substance: DEXAMETHASONE
     Indication: Asthma
  13. DEXAMETHASONE [Concomitant]
     Active Substance: DEXAMETHASONE
     Indication: Snoring
  14. epinephrine aerosols [Concomitant]
     Indication: Croup infectious
  15. epinephrine aerosols [Concomitant]
     Indication: Asthma
  16. epinephrine aerosols [Concomitant]
     Indication: Snoring
  17. IPRATROPIUM [Concomitant]
     Active Substance: IPRATROPIUM
     Indication: Croup infectious
  18. IPRATROPIUM [Concomitant]
     Active Substance: IPRATROPIUM
     Indication: Asthma
  19. IPRATROPIUM [Concomitant]
     Active Substance: IPRATROPIUM
     Indication: Snoring
  20. helium/oxygen 60/40 [Concomitant]
     Indication: Croup infectious
  21. helium/oxygen 60/40 [Concomitant]
     Indication: Asthma
  22. helium/oxygen 60/40 [Concomitant]
     Indication: Snoring

REACTIONS (1)
  - Respiratory failure [Recovering/Resolving]
